FAERS Safety Report 22950100 (Version 3)
Quarter: 2023Q4

REPORT INFORMATION
  Report Type: Spontaneous
  Country: US (occurrence: US)
  Receive Date: 20230915
  Receipt Date: 20231115
  Transmission Date: 20240110
  Serious: No
  Sender: FDA-Public Use
  Company Number: US-PFIZER INC-PV202300155512

PATIENT
  Age: 47 Year
  Sex: Male
  Weight: 118 kg

DRUGS (3)
  1. BOSULIF [Suspect]
     Active Substance: BOSUTINIB MONOHYDRATE
     Indication: Chronic myeloid leukaemia
     Dosage: 100 MG
  2. BOSULIF [Suspect]
     Active Substance: BOSUTINIB MONOHYDRATE
     Dosage: 1 TABLET BY MOUTH ONCE DAILY (SWALLOW WHOLE)
     Route: 048
     Dates: start: 20230330
  3. BOSULIF [Suspect]
     Active Substance: BOSUTINIB MONOHYDRATE
     Dosage: 400 MG, DAILY (TAKE 4 (100 MG) TABLETS DAILY. TAKE WITH FOOD. SWALLOW WHOLE)
     Route: 048

REACTIONS (1)
  - Night sweats [Unknown]
